FAERS Safety Report 20198383 (Version 3)
Quarter: 2023Q1

REPORT INFORMATION
  Report Type: Spontaneous
  Country: CA (occurrence: CA)
  Receive Date: 20211217
  Receipt Date: 20230112
  Transmission Date: 20230418
  Serious: Yes (Other)
  Sender: FDA-Public Use
  Company Number: CA-BRISTOL-MYERS SQUIBB COMPANY-BMS-2021-133125

PATIENT
  Age: 41 Year
  Sex: Male

DRUGS (8)
  1. DASATINIB [Suspect]
     Active Substance: DASATINIB
     Indication: Chronic myeloid leukaemia
     Dosage: 50 MILLIGRAM, QD
  2. URSODIOL [Concomitant]
     Active Substance: URSODIOL
     Indication: Prophylaxis against transplant rejection
     Dosage: UNK
  3. URSODIOL [Concomitant]
     Active Substance: URSODIOL
     Indication: Immunosuppressant drug therapy
  4. TACROLIMUS [Concomitant]
     Active Substance: TACROLIMUS
     Indication: Immunosuppression
     Dosage: UNK
  5. TACROLIMUS [Concomitant]
     Active Substance: TACROLIMUS
     Indication: Immunosuppressant drug therapy
  6. MESALAMINE [Concomitant]
     Active Substance: MESALAMINE
     Indication: Prophylaxis against transplant rejection
     Dosage: UNK
  7. PREDNISONE [Concomitant]
     Active Substance: PREDNISONE
     Indication: Immunosuppression
     Dosage: UNK
  8. PREDNISONE [Concomitant]
     Active Substance: PREDNISONE
     Indication: Immunosuppressant drug therapy

REACTIONS (5)
  - Thrombocytopenia [Recovered/Resolved]
  - Philadelphia positive chronic myeloid leukaemia [Recovered/Resolved]
  - General physical health deterioration [Recovered/Resolved]
  - Loss of personal independence in daily activities [Recovered/Resolved]
  - Pain [Recovered/Resolved]
